FAERS Safety Report 8942530 (Version 1)
Quarter: 2012Q4

REPORT INFORMATION
  Report Type: Report from Study
  Country: GR (occurrence: GR)
  Receive Date: 20121204
  Receipt Date: 20121204
  Transmission Date: 20130627
  Serious: Yes (Hospitalization)
  Sender: FDA-Public Use
  Company Number: GR-009507513-1211GRC012649

PATIENT
  Age: 39 Year
  Sex: Male
  Weight: 80 kg

DRUGS (6)
  1. TEMOZOLOMIDE [Suspect]
     Indication: GLIOBLASTOMA
     Dosage: 560 mg (280mg, 2 in 1 D)
     Route: 048
     Dates: start: 20110308, end: 20110308
  2. TEMOZOLOMIDE [Suspect]
     Dosage: 560 mg (280mg, 2 in 1 D)
     Dates: start: 20110603
  3. DEXAMETHASONE [Suspect]
     Dosage: UNK
     Dates: start: 20110308, end: 20110530
  4. STUDY DRUG (UNSPECIFIED) [Suspect]
  5. OMEPRAZOLE [Concomitant]
     Dosage: 40 mg, Unknown
     Dates: start: 20110210, end: 20110519
  6. KEPPRA [Concomitant]
     Dosage: 1000 mg, unk
     Dates: start: 20110210

REACTIONS (1)
  - Respiratory tract infection [Recovered/Resolved]
